FAERS Safety Report 10620071 (Version 1)
Quarter: 2014Q4

REPORT INFORMATION
  Report Type: Spontaneous
  Country: DE (occurrence: JP)
  Receive Date: 20141202
  Receipt Date: 20141202
  Transmission Date: 20150529
  Serious: Yes (Other)
  Sender: FDA-Public Use
  Company Number: JP-FRI-1000072752

PATIENT
  Age: 80 Year
  Sex: Male

DRUGS (1)
  1. MEMANTINE [Suspect]
     Active Substance: MEMANTINE
     Dosage: 5 MG

REACTIONS (3)
  - Cerebral infarction [Unknown]
  - Chromaturia [Not Recovered/Not Resolved]
  - Urinary incontinence [Unknown]
